FAERS Safety Report 5379894-1 (Version None)
Quarter: 2007Q3

REPORT INFORMATION
  Report Type: 
  Country: None (occurrence: None)
  Receive Date: 20070706
  Receipt Date: 20070625
  Transmission Date: 20080115
  Serious: Yes (Other)
  Sender: FDA-Public Use
  Company Number: PHBS2007BR10916

PATIENT
  Age: 48 Year
  Sex: Male
  Weight: 72 kg

DRUGS (8)
  1. FORADIL [Suspect]
     Indication: ASTHMA
     Dosage: UNK, Q12H
  2. FORASEQ [Suspect]
  3. DECADRON [Concomitant]
     Indication: CHRONIC SINUSITIS
     Dosage: 3.5 MG, TID
     Route: 048
  4. LEVOFLOXACIN [Concomitant]
     Indication: CHRONIC SINUSITIS
     Dosage: 500 MG, QD
     Route: 048
  5. DIAZEPAM [Concomitant]
     Dosage: 5 MG/DAY
     Route: 048
     Dates: start: 20060301
  6. BRIMONIDINE TARTRATE [Concomitant]
     Indication: GLAUCOMA
     Dosage: UNK, QD
     Route: 047
  7. SALBUTAMOL [Concomitant]
     Indication: ASTHMA
     Dosage: 1 DF, PRN
  8. MIFLASONE [Suspect]
     Indication: ASTHMA
     Dosage: UNK, Q12H

REACTIONS (5)
  - MENINGITIS BACTERIAL [None]
  - NASAL CONGESTION [None]
  - NASAL DISORDER [None]
  - SINUSITIS [None]
  - SURGERY [None]
